FAERS Safety Report 15896546 (Version 1)
Quarter: 2019Q1

REPORT INFORMATION
  Report Type: Spontaneous
  Country: US (occurrence: US)
  Receive Date: 20190131
  Receipt Date: 20190131
  Transmission Date: 20190417
  Serious: No
  Sender: FDA-Public Use
  Company Number: US-009507513-1901USA010998

PATIENT
  Age: 84 Year
  Sex: Female

DRUGS (3)
  1. NATEGLINIDE. [Suspect]
     Active Substance: NATEGLINIDE
     Dosage: UNK
  2. INSULIN [Suspect]
     Active Substance: INSULIN NOS
     Dosage: UNK
  3. JANUMET XR [Suspect]
     Active Substance: METFORMIN HYDROCHLORIDE\SITAGLIPTIN PHOSPHATE
     Indication: DIABETES MELLITUS
     Dosage: 1 TABLET TWICE A DAY
     Route: 048
     Dates: start: 2018

REACTIONS (9)
  - Fall [Unknown]
  - Contusion [Recovered/Resolved]
  - Head injury [Unknown]
  - Wrong technique in product usage process [Unknown]
  - Dysphagia [Unknown]
  - Face injury [Recovered/Resolved]
  - Mental disorder [Not Recovered/Not Resolved]
  - Weight abnormal [Unknown]
  - Incorrect dose administered [Unknown]

NARRATIVE: CASE EVENT DATE: 2018
